FAERS Safety Report 7241075-4 (Version None)
Quarter: 2011Q1

REPORT INFORMATION
  Report Type: 
  Country: None (occurrence: None)
  Receive Date: 20110120
  Receipt Date: 20110120
  Transmission Date: 20110831
  Serious: Yes (Other)
  Sender: FDA-Public Use
  Company Number: None

PATIENT
  Sex: Male
  Weight: 90.9 kg

DRUGS (2)
  1. LIPITOR [Suspect]
     Indication: BLOOD CHOLESTEROL
     Dosage: 20 MG ONCE DAILY
     Dates: start: 20070201, end: 20100801
  2. SIMVASTATIN [Suspect]
     Indication: BLOOD CHOLESTEROL
     Dosage: 20 MG ONCE DAILY
     Dates: start: 20060201, end: 20100701

REACTIONS (3)
  - LOSS OF EMPLOYMENT [None]
  - DEMENTIA [None]
  - AMNESIA [None]
